FAERS Safety Report 13929006 (Version 1)
Quarter: 2017Q3

REPORT INFORMATION
  Report Type: Spontaneous
  Country: US (occurrence: None)
  Receive Date: 20170901
  Receipt Date: 20170901
  Transmission Date: 20171127
  Serious: No
  Sender: FDA-Public Use
  Company Number: None

PATIENT
  Age: 32 Year
  Sex: Male

DRUGS (1)
  1. ONDANSETRON TAB 8MG [Suspect]
     Active Substance: ONDANSETRON

REACTIONS (2)
  - Therapy change [None]
  - Constipation [None]

NARRATIVE: CASE EVENT DATE: 20170818
